FAERS Safety Report 9989255 (Version 1)
Quarter: 2013Q4

REPORT INFORMATION
  Report Type: Spontaneous
  Country: US (occurrence: None)
  Receive Date: 20131024
  Receipt Date: 20131024
  Transmission Date: 20140711
  Serious: Yes (Hospitalization)
  Sender: FDA-Public Use
  Company Number: OTH-SPN-2012010

PATIENT
  Age: 3 Year
  Sex: Male

DRUGS (1)
  1. CARBAGLU [Suspect]
     Indication: HYPERAMMONAEMIA
     Dosage: 1 EVERY DAY
     Route: 048
     Dates: start: 20110324

REACTIONS (3)
  - Vomiting [None]
  - Hyperammonaemia [None]
  - Condition aggravated [None]
